FAERS Safety Report 10932987 (Version 1)
Quarter: 2015Q1

REPORT INFORMATION
  Report Type: Spontaneous
  Country: US (occurrence: None)
  Receive Date: 20150319
  Receipt Date: 20150319
  Transmission Date: 20150721
  Serious: No
  Sender: FDA-Public Use
  Company Number: 2015CT000024

PATIENT
  Age: 41 Year
  Sex: Female
  Weight: 77.11 kg

DRUGS (7)
  1. SYNTHROID [Concomitant]
     Active Substance: LEVOTHYROXINE SODIUM
  2. SIMVASTATIN. [Concomitant]
     Active Substance: SIMVASTATIN
  3. EPLERENONE. [Concomitant]
     Active Substance: EPLERENONE
  4. KLONOPIN [Concomitant]
     Active Substance: CLONAZEPAM
  5. VICTOZA [Concomitant]
     Active Substance: LIRAGLUTIDE
  6. KORLYM [Suspect]
     Active Substance: MIFEPRISTONE
     Indication: CUSHING^S SYNDROME
     Route: 048
     Dates: start: 20140728
  7. CELEXA [Concomitant]
     Active Substance: CITALOPRAM HYDROBROMIDE

REACTIONS (2)
  - Gastroenteritis viral [None]
  - Vomiting [None]

NARRATIVE: CASE EVENT DATE: 201501
